FAERS Safety Report 6345669-X (Version None)
Quarter: 2009Q3

REPORT INFORMATION
  Report Type: 
  Country: None (occurrence: None)
  Receive Date: 20090909
  Receipt Date: 20090826
  Transmission Date: 20100115
  Serious: Yes (Death, Other)
  Sender: FDA-Public Use
  Company Number: US-PFIZER INC-2009260500

PATIENT
  Age: 47 Year
  Sex: Male
  Weight: 79.819 kg

DRUGS (7)
  1. SUTENT [Suspect]
     Indication: RENAL CELL CARCINOMA
     Dosage: 37.5 MG, 1X/DAY, QD  28D, 14D OFF
     Route: 048
     Dates: start: 20070912
  2. SUTENT [Suspect]
     Dosage: 50 MG, 1X/DAY, QD  28D, 14D OFF
     Dates: start: 20071107, end: 20080910
  3. HEPARIN [Concomitant]
     Dosage: 5000 IU, 2X/DAY (Q12H)
     Route: 058
  4. PROTONIX [Concomitant]
     Dosage: 40 MG, 1X/DAY
     Route: 042
  5. AMPICILLIN [Concomitant]
     Dosage: 1000 MG, 3X/DAY (Q8H)
     Route: 042
  6. GENTAMICIN [Concomitant]
     Dosage: 80 MG, 3X/DAY (Q8H)
     Route: 042
  7. DITROPAN [Concomitant]
     Dosage: 5 MG, 3X/DAY (Q8H)
     Route: 048

REACTIONS (7)
  - CORONARY ARTERY DISEASE [None]
  - DISEASE PROGRESSION [None]
  - EJECTION FRACTION DECREASED [None]
  - PERICARDIAL EFFUSION [None]
  - PERICARDITIS [None]
  - PLEURAL EFFUSION [None]
  - RENAL CELL CARCINOMA [None]
